FAERS Safety Report 9368788 (Version 1)
Quarter: 2013Q2

REPORT INFORMATION
  Report Type: Report from Study
  Country: US (occurrence: US)
  Receive Date: 20130626
  Receipt Date: 20130626
  Transmission Date: 20140414
  Serious: Yes (Life-Threatening, Hospitalization)
  Sender: FDA-Public Use
  Company Number: US-ROCHE-1240828

PATIENT
  Age: 54 Year
  Sex: Female

DRUGS (9)
  1. BEVACIZUMAB [Suspect]
     Indication: BREAST CANCER
     Dosage: LAST DOSE PRIOR TO SAE: 17/JUN/2011
     Route: 065
     Dates: start: 20110304
  2. DOCETAXEL [Suspect]
     Indication: BREAST CANCER
     Dosage: LAST DOSE PRIOR TO SAE: 17/JUN/2011
     Route: 065
     Dates: start: 20110304
  3. CYCLOPHOSPHAMIDE [Suspect]
     Indication: BREAST CANCER
     Dosage: LAST DOSE PRIOR TO SAE: 17/JUN/2011
     Route: 065
     Dates: start: 20110304
  4. ANASTROZOLE [Concomitant]
  5. ALPRAZOLAM [Concomitant]
  6. EFFEXOR [Concomitant]
  7. MIRALAX [Concomitant]
  8. TRAZODONE [Concomitant]
  9. IBUPROFEN [Concomitant]

REACTIONS (1)
  - Thrombotic thrombocytopenic purpura [Unknown]
